FAERS Safety Report 7305754-2 (Version None)
Quarter: 2011Q1

REPORT INFORMATION
  Report Type: 
  Country: None (occurrence: None)
  Receive Date: 20110222
  Receipt Date: 20110214
  Transmission Date: 20110831
  Serious: Yes (Other)
  Sender: FDA-Public Use
  Company Number: B0697857A

PATIENT
  Age: 83 Year
  Sex: Female
  Weight: 38 kg

DRUGS (3)
  1. RANITIDINE [Suspect]
     Indication: PRODUCT USED FOR UNKNOWN INDICATION
     Route: 048
     Dates: start: 20080819, end: 20081014
  2. VANCOMYCIN [Concomitant]
     Dates: start: 20080731
  3. LANSOPRAZOLE [Suspect]
     Route: 065

REACTIONS (8)
  - INFLAMMATION [None]
  - HYPOKALAEMIA [None]
  - DIARRHOEA [None]
  - OEDEMA [None]
  - COLITIS COLLAGENOUS [None]
  - ANAEMIA [None]
  - GASTROINTESTINAL SOUNDS ABNORMAL [None]
  - HYPOALBUMINAEMIA [None]
